APPROVED DRUG PRODUCT: GANTRISIN
Active Ingredient: SULFISOXAZOLE DIOLAMINE
Strength: EQ 4% BASE
Dosage Form/Route: SOLUTION/DROPS;OPHTHALMIC
Application: N007757 | Product #002
Applicant: HOFFMANN LA ROCHE INC
Approved: Approved Prior to Jan 1, 1982 | RLD: No | RS: No | Type: DISCN